FAERS Safety Report 17572696 (Version 3)
Quarter: 2020Q3

REPORT INFORMATION
  Report Type: Spontaneous
  Country: US (occurrence: US)
  Receive Date: 20200323
  Receipt Date: 20200702
  Transmission Date: 20201102
  Serious: No
  Sender: FDA-Public Use
  Company Number: US-SA-2020SA072676

PATIENT

DRUGS (1)
  1. DUPIXENT [Suspect]
     Active Substance: DUPILUMAB
     Indication: DERMATITIS ATOPIC
     Dosage: 300 MG, QOW
     Route: 058
     Dates: start: 20200306

REACTIONS (7)
  - Ocular hyperaemia [Unknown]
  - Fatigue [Unknown]
  - Rash [Unknown]
  - Itching scar [Unknown]
  - Skin weeping [Unknown]
  - Condition aggravated [Unknown]
  - Eye pruritus [Unknown]

NARRATIVE: CASE EVENT DATE: 2020
